FAERS Safety Report 4498899-6 (Version None)
Quarter: 2004Q4

REPORT INFORMATION
  Report Type: 
  Country: None (occurrence: None)
  Receive Date: 20041111
  Receipt Date: 20041025
  Transmission Date: 20050328
  Serious: Yes (Hospitalization)
  Sender: FDA-Public Use
  Company Number: US-AMGEN-US096909

PATIENT
  Sex: Male
  Weight: 77.2 kg

DRUGS (10)
  1. ARANESP [Suspect]
     Indication: MYELODYSPLASTIC SYNDROME
     Dates: start: 20040801
  2. AMIODARONE HCL [Concomitant]
  3. ASPIRIN [Concomitant]
  4. LOPID [Concomitant]
  5. ZOCOR [Concomitant]
  6. FLOMAX [Concomitant]
  7. CELEBREX [Concomitant]
  8. TRAZODONE HCL [Concomitant]
  9. GLUCOSAMINE [Concomitant]
  10. CHONDROITIN [Concomitant]

REACTIONS (3)
  - GROIN PAIN [None]
  - HAEMOGLOBIN DECREASED [None]
  - HERNIA [None]
